FAERS Safety Report 16804158 (Version 1)
Quarter: 2019Q3

REPORT INFORMATION
  Report Type: Spontaneous
  Country: GB (occurrence: ES)
  Receive Date: 20190913
  Receipt Date: 20190913
  Transmission Date: 20191005
  Serious: Yes (Other)
  Sender: FDA-Public Use
  Company Number: ES-BAYER-2019-168355

PATIENT
  Age: 47 Year
  Sex: Male
  Weight: 94 kg

DRUGS (1)
  1. NAPROXEN SODIUM ({= 220 MG) [Suspect]
     Active Substance: NAPROXEN SODIUM
     Indication: CLAVICLE FRACTURE
     Dosage: UNK

REACTIONS (4)
  - Dizziness [Recovered/Resolved]
  - Balance disorder [Recovered/Resolved]
  - Hyperhidrosis [Recovered/Resolved]
  - Renal impairment [Recovering/Resolving]

NARRATIVE: CASE EVENT DATE: 20190824
